FAERS Safety Report 4909638-6 (Version None)
Quarter: 2006Q1

REPORT INFORMATION
  Report Type: 
  Country: None (occurrence: None)
  Receive Date: 20060213
  Receipt Date: 20051110
  Transmission Date: 20060701
  Serious: Yes (Hospitalization, Disabling)
  Sender: FDA-Public Use
  Company Number: US-MERCK-0511USA01901

PATIENT
  Age: 50 Year
  Sex: Female
  Weight: 86 kg

DRUGS (9)
  1. ADVAIR DISKUS 100/50 [Concomitant]
     Route: 065
  2. BIAXIN [Concomitant]
     Route: 065
  3. LOVENOX [Concomitant]
     Route: 065
     Dates: start: 20030101
  4. PREDNISONE [Concomitant]
     Route: 065
  5. RELAFEN [Concomitant]
     Route: 065
  6. ZYRTEC [Concomitant]
     Route: 065
  7. BEXTRA [Concomitant]
     Route: 065
     Dates: start: 20040317
  8. VIOXX [Suspect]
     Indication: ARTHRITIS
     Route: 048
     Dates: start: 19990701, end: 20040901
  9. VIOXX [Suspect]
     Indication: ANTIINFLAMMATORY THERAPY
     Route: 048
     Dates: start: 19990701, end: 20040901

REACTIONS (27)
  - ANGINA PECTORIS [None]
  - ARTERIOSCLEROSIS [None]
  - BLOOD CHOLESTEROL INCREASED [None]
  - BLOOD GLUCOSE INCREASED [None]
  - BLOOD POTASSIUM DECREASED [None]
  - BLOOD TRIGLYCERIDES INCREASED [None]
  - CARDIAC DISORDER [None]
  - CARDIAC FAILURE CONGESTIVE [None]
  - CARPAL TUNNEL SYNDROME [None]
  - CATHETERISATION CARDIAC [None]
  - CHEST PAIN [None]
  - CORONARY ARTERY DISEASE [None]
  - DEEP VEIN THROMBOSIS [None]
  - DIABETES MELLITUS NON-INSULIN-DEPENDENT [None]
  - ECZEMA [None]
  - GASTRIC DISORDER [None]
  - HYPERCOAGULATION [None]
  - HYPERTENSION [None]
  - INJURY [None]
  - MYOCARDIAL INFARCTION [None]
  - OEDEMA PERIPHERAL [None]
  - OSTEOPENIA [None]
  - PAIN IN EXTREMITY [None]
  - PULMONARY EMBOLISM [None]
  - RENAL FAILURE [None]
  - ROTATOR CUFF SYNDROME [None]
  - SCIATIC NERVE NEUROPATHY [None]
